FAERS Safety Report 6766654-X (Version None)
Quarter: 2010Q2

REPORT INFORMATION
  Report Type: 
  Country: None (occurrence: None)
  Receive Date: 20100611
  Receipt Date: 20100520
  Transmission Date: 20101027
  Serious: Yes (Other)
  Sender: FDA-Public Use
  Company Number: JP-ALLERGAN-1007168US

PATIENT
  Age: 71 Year
  Sex: Male

DRUGS (6)
  1. LUMIGAN [Suspect]
     Indication: GLAUCOMA
     Dosage: 1 GTT, QD
     Route: 047
     Dates: start: 20100113
  2. LATANOPROST [Concomitant]
     Dosage: UNK
     Route: 047
     Dates: end: 20100113
  3. RYSMON TG [Concomitant]
     Dosage: 1 GTT, QD
     Route: 047
     Dates: end: 20100113
  4. AZOPT [Concomitant]
     Dosage: 1 GTT, BID
     Route: 047
     Dates: end: 20100113
  5. ACETAZOLAMIDE [Concomitant]
  6. POTASSIUM L-ASPARTATE [Concomitant]

REACTIONS (2)
  - INTRAOCULAR PRESSURE INCREASED [None]
  - VITREOUS HAEMORRHAGE [None]
